FAERS Safety Report 21772518 (Version 1)
Quarter: 2022Q4

REPORT INFORMATION
  Report Type: Spontaneous
  Country: US (occurrence: US)
  Receive Date: 20221223
  Receipt Date: 20221223
  Transmission Date: 20230113
  Serious: No
  Sender: FDA-Public Use
  Company Number: US-JNJFOC-20221246887

PATIENT
  Sex: Male

DRUGS (1)
  1. ZYTIGA [Suspect]
     Active Substance: ABIRATERONE ACETATE
     Indication: Product used for unknown indication
     Dosage: TAKE 4 TABLETS BY MOUTH ONCE DAILY AS DIRECTED. TAKE 1 HOUR BEFORE OR 2 HOURS AFTER A MEAL
     Route: 048

REACTIONS (1)
  - Fatigue [Unknown]
